FAERS Safety Report 15362045 (Version 10)
Quarter: 2023Q2

REPORT INFORMATION
  Report Type: Report from Study
  Country: PL (occurrence: None)
  Receive Date: 20180907
  Receipt Date: 20230517
  Transmission Date: 20230722
  Serious: Yes (Hospitalization, Other)
  Sender: FDA-Public Use
  Company Number: PL-EISAI MEDICAL RESEARCH-EC-2018-044085

PATIENT
  Age: 51 Year
  Sex: Male
  Weight: 89 kg

DRUGS (12)
  1. LENVATINIB [Suspect]
     Active Substance: LENVATINIB
     Indication: Renal cell carcinoma
     Route: 048
     Dates: start: 20180530, end: 20180724
  2. LENVATINIB [Suspect]
     Active Substance: LENVATINIB
     Route: 048
     Dates: start: 20180730, end: 20180830
  3. LENVATINIB [Suspect]
     Active Substance: LENVATINIB
     Route: 048
     Dates: start: 20180904, end: 20221214
  4. EVEROLIMUS [Suspect]
     Active Substance: EVEROLIMUS
     Indication: Renal cell carcinoma
     Route: 048
     Dates: start: 20180530, end: 20180724
  5. EVEROLIMUS [Suspect]
     Active Substance: EVEROLIMUS
     Route: 048
     Dates: start: 20180730, end: 20180830
  6. EVEROLIMUS [Suspect]
     Active Substance: EVEROLIMUS
     Route: 048
     Dates: start: 20180904, end: 20181020
  7. EVEROLIMUS [Suspect]
     Active Substance: EVEROLIMUS
     Route: 048
     Dates: start: 20181112, end: 20190105
  8. ENOXAPARIN SODIUM [Concomitant]
     Active Substance: ENOXAPARIN SODIUM
  9. SERTRALINE [Concomitant]
     Active Substance: SERTRALINE HYDROCHLORIDE
  10. FENOFIBRATE [Concomitant]
     Active Substance: FENOFIBRATE
  11. ROSUVASTATIN [Concomitant]
     Active Substance: ROSUVASTATIN
  12. OMEPRAZOLE [Concomitant]
     Active Substance: OMEPRAZOLE

REACTIONS (3)
  - Acute coronary syndrome [Recovered/Resolved]
  - Hypertriglyceridaemia [Recovering/Resolving]
  - Pulmonary embolism [Recovered/Resolved]

NARRATIVE: CASE EVENT DATE: 20180724
